FAERS Safety Report 22113067 (Version 3)
Quarter: 2023Q2

REPORT INFORMATION
  Report Type: Spontaneous
  Country: US (occurrence: US)
  Receive Date: 20230320
  Receipt Date: 20230413
  Transmission Date: 20230722
  Serious: No
  Sender: FDA-Public Use
  Company Number: US-LUPIN PHARMACEUTICALS INC.-2023-02142

PATIENT

DRUGS (6)
  1. MISOPROSTOL [Suspect]
     Active Substance: MISOPROSTOL
     Indication: Abortion
     Dosage: 1 DOSAGE FORM, 200 MICROGRAM
     Route: 065
     Dates: start: 20230206, end: 20230206
  2. MISOPROSTOL [Suspect]
     Active Substance: MISOPROSTOL
     Dosage: 1 DOSAGE FORM, 200 MICROGRAM
     Route: 065
     Dates: start: 20230209, end: 20230209
  3. MISOPROSTOL [Suspect]
     Active Substance: MISOPROSTOL
     Dosage: 1 DOSAGE FORM, 200 MICROGRAM
     Route: 065
     Dates: start: 20230213, end: 20230213
  4. MIFEPREX [Suspect]
     Active Substance: MIFEPRISTONE
     Indication: Abortion
     Dosage: 200 MG, SWALLOW WITH WATER
     Route: 048
     Dates: start: 20230206, end: 20230206
  5. MIFEPREX [Suspect]
     Active Substance: MIFEPRISTONE
     Dosage: 200 MG, SWALLOW WITH WATER
     Route: 048
     Dates: start: 20230209, end: 20230209
  6. MIFEPREX [Suspect]
     Active Substance: MIFEPRISTONE
     Dosage: 200 MG, SWALLOW WITH WATER
     Route: 048
     Dates: start: 20230213, end: 20230213

REACTIONS (4)
  - Extra dose administered [Unknown]
  - Exposure during pregnancy [Unknown]
  - Drug ineffective for unapproved indication [Unknown]
  - Off label use [Unknown]
